FAERS Safety Report 6377524-3 (Version None)
Quarter: 2009Q3

REPORT INFORMATION
  Report Type: 
  Country: None (occurrence: None)
  Receive Date: 20090921
  Receipt Date: 20090907
  Transmission Date: 20100115
  Serious: Yes (Hospitalization)
  Sender: FDA-Public Use
  Company Number: 8044914

PATIENT
  Age: 68 Year
  Sex: Female
  Weight: 81 kg

DRUGS (17)
  1. CERTOLIZUMAB PEGOL [Suspect]
     Indication: RHEUMATOID ARTHRITIS
     Dosage: 400 MG M SC
     Route: 058
     Dates: start: 20030910, end: 20090421
  2. CERTOLIZUMAB PEGOL [Suspect]
     Indication: RHEUMATOID ARTHRITIS
     Dosage: 400 MG M SC
     Route: 058
     Dates: start: 20090513, end: 20090612
  3. CERTOLIZUMAB PEGOL [Suspect]
     Indication: RHEUMATOID ARTHRITIS
     Dosage: 400 MG M SC
     Route: 058
     Dates: start: 20090713
  4. PREDNISOLONE [Concomitant]
  5. METHOTREXATE [Concomitant]
  6. FOLSAN [Concomitant]
  7. TIOTROPIUM BROMIDE [Concomitant]
  8. L-THYROXIN [Concomitant]
  9. METOPROLOL [Concomitant]
  10. RAMIPRIL [Concomitant]
  11. METFORMIN [Concomitant]
  12. LEVEMIR [Concomitant]
  13. ACTOS [Concomitant]
  14. CITALOPRAM [Concomitant]
  15. HYDROCHLOROTHIAZIDE [Concomitant]
  16. METOPROLOL [Concomitant]
  17. CLEXANE [Concomitant]

REACTIONS (15)
  - ACINETOBACTER INFECTION [None]
  - ASTHMA [None]
  - BACTERIA WOUND IDENTIFIED [None]
  - CONDITION AGGRAVATED [None]
  - CORYNEBACTERIUM INFECTION [None]
  - DIABETES MELLITUS [None]
  - EXOSTOSIS [None]
  - HYPERTENSION [None]
  - IMPAIRED HEALING [None]
  - PAIN IN EXTREMITY [None]
  - POSTOPERATIVE WOUND COMPLICATION [None]
  - SOFT TISSUE INFLAMMATION [None]
  - STAPHYLOCOCCAL INFECTION [None]
  - THYROIDECTOMY [None]
  - WOUND DEHISCENCE [None]
